FAERS Safety Report 18647139 (Version 1)
Quarter: 2020Q4

REPORT INFORMATION
  Report Type: Other
  Country: LU (occurrence: LU)
  Receive Date: 20201221
  Receipt Date: 20201221
  Transmission Date: 20210114
  Serious: Yes (Other)
  Sender: FDA-Public Use
  Company Number: LU-VALIDUS PHARMACEUTICALS LLC-LU-2020VAL001059

PATIENT
  Age: 38 Year
  Sex: Male
  Weight: 48 kg

DRUGS (16)
  1. LASIX [Suspect]
     Active Substance: FUROSEMIDE
     Indication: PRODUCT USED FOR UNKNOWN INDICATION
     Dosage: 20 MG, Q12H
     Route: 042
     Dates: start: 20201023, end: 20201108
  2. LEVOPHED [Suspect]
     Active Substance: NOREPINEPHRINE BITARTRATE
     Indication: CHEMOTHERAPY CYTOKINE PROPHYLAXIS
     Dosage: 0.12 ?G/KG, QMN
     Route: 042
     Dates: start: 20201019, end: 20201106
  3. OBRACIN [Suspect]
     Active Substance: TOBRAMYCIN
     Indication: RESPIRATORY TRACT INFECTION
     Dosage: 385 MG, UNK
     Route: 042
     Dates: start: 20201030, end: 20201111
  4. PARACETAMOL [Concomitant]
     Active Substance: ACETAMINOPHEN
     Indication: PRODUCT USED FOR UNKNOWN INDICATION
     Dosage: UNK
     Dates: start: 20201019
  5. CLEXANE [Concomitant]
     Active Substance: ENOXAPARIN SODIUM
     Indication: PRODUCT USED FOR UNKNOWN INDICATION
     Dosage: UNK
     Dates: start: 20201019
  6. CIPROFLOXACINE KABI [Suspect]
     Active Substance: CIPROFLOXACIN
     Indication: PRODUCT USED FOR UNKNOWN INDICATION
     Dosage: 400 MG, Q12H
     Route: 042
     Dates: start: 20201019, end: 20201111
  7. MEROPENEM KABI [Suspect]
     Active Substance: MEROPENEM
     Indication: PRODUCT USED FOR UNKNOWN INDICATION
     Dosage: 2 G, Q8H
     Dates: start: 20201022, end: 20201111
  8. DEXDOR [Suspect]
     Active Substance: DEXMEDETOMIDINE HYDROCHLORIDE
     Indication: SEDATION
     Dosage: 0.8 ?G/KG, QD
     Route: 042
     Dates: start: 20201020, end: 20201106
  9. ZITHROMAX [Concomitant]
     Active Substance: AZITHROMYCIN DIHYDRATE
     Indication: PRODUCT USED FOR UNKNOWN INDICATION
     Dosage: UNK
  10. DUOVENT [Concomitant]
     Active Substance: FENOTEROL HYDROBROMIDE
     Indication: PRODUCT USED FOR UNKNOWN INDICATION
     Dosage: UNK
     Dates: start: 20201019
  11. ACETYLCYSTEINE. [Suspect]
     Active Substance: ACETYLCYSTEINE
     Indication: PRODUCT USED FOR UNKNOWN INDICATION
     Dosage: 300 MG, Q6H
     Route: 042
     Dates: start: 20201031, end: 20201109
  12. VANCOMYCIN [Suspect]
     Active Substance: VANCOMYCIN
     Indication: PRODUCT USED FOR UNKNOWN INDICATION
     Dosage: 2 G, QD
     Route: 042
     Dates: start: 20201019, end: 20201111
  13. CREON [Concomitant]
     Active Substance: PANCRELIPASE AMYLASE\PANCRELIPASE LIPASE\PANCRELIPASE PROTEASE
     Indication: PRODUCT USED FOR UNKNOWN INDICATION
     Dosage: UNK
  14. COLISTIMETHATE SODIUM. [Suspect]
     Active Substance: COLISTIMETHATE SODIUM
     Indication: PRODUCT USED FOR UNKNOWN INDICATION
     Dosage: 2 10*6.IU, Q12H
     Route: 055
     Dates: start: 20201104
  15. MIDAZOLAM HYDROCHLORIDE. [Suspect]
     Active Substance: MIDAZOLAM HYDROCHLORIDE
     Indication: SEDATION
     Dosage: 2 MG, QH
     Route: 042
     Dates: start: 20201027, end: 20201106
  16. CAYSTON [Concomitant]
     Active Substance: AZTREONAM
     Indication: PRODUCT USED FOR UNKNOWN INDICATION
     Dosage: UNK

REACTIONS (3)
  - Generalised tonic-clonic seizure [Recovered/Resolved]
  - Generalised tonic-clonic seizure [Recovered/Resolved]
  - Myoclonus [Not Recovered/Not Resolved]

NARRATIVE: CASE EVENT DATE: 20201107
